FAERS Safety Report 9224369 (Version 1)
Quarter: 2013Q2

REPORT INFORMATION
  Report Type: Spontaneous
  Country: US (occurrence: None)
  Receive Date: 20130409
  Receipt Date: 20130409
  Transmission Date: 20140414
  Serious: No
  Sender: FDA-Public Use
  Company Number: None

PATIENT
  Age: 70 Year
  Sex: Female
  Weight: 95.26 kg

DRUGS (1)
  1. EFEXOR XL [Suspect]
     Indication: HOT FLUSH
     Route: 048
     Dates: start: 2009, end: 2012

REACTIONS (6)
  - Withdrawal syndrome [None]
  - Fatigue [None]
  - Agitation [None]
  - Decreased activity [None]
  - Paraesthesia [None]
  - Feeling hot [None]
